FAERS Safety Report 9886917 (Version 2)
Quarter: 2014Q3

REPORT INFORMATION
  Report Type: Spontaneous
  Country: CA (occurrence: CA)
  Receive Date: 20140210
  Receipt Date: 20140725
  Transmission Date: 20150326
  Serious: Yes (Hospitalization, Other)
  Sender: FDA-Public Use
  Company Number: CA-AMGEN-CANSP2014008636

PATIENT
  Age: 37 Year
  Sex: Female

DRUGS (2)
  1. ACIDOPHILUS [Concomitant]
     Active Substance: LACTOBACILLUS ACIDOPHILUS
     Dosage: UNK
  2. ENBREL [Suspect]
     Active Substance: ETANERCEPT
     Indication: PSORIATIC ARTHROPATHY
     Dosage: 25 MG, 2 TIMES/WK
     Route: 058
     Dates: start: 20070108

REACTIONS (4)
  - Headache [Recovered/Resolved]
  - Brain neoplasm benign [Not Recovered/Not Resolved]
  - Hydrocephalus [Recovering/Resolving]
  - Colloid brain cyst [Unknown]

NARRATIVE: CASE EVENT DATE: 200901
